FAERS Safety Report 11914470 (Version 1)
Quarter: 2016Q1

REPORT INFORMATION
  Report Type: Report from Study
  Country: CA (occurrence: CA)
  Receive Date: 20160113
  Receipt Date: 20160113
  Transmission Date: 20160526
  Serious: Yes (Other)
  Sender: FDA-Public Use
  Company Number: CA-JNJFOC-20151004001

PATIENT
  Age: 39 Year
  Sex: Female
  Weight: 60 kg

DRUGS (4)
  1. REMICADE [Suspect]
     Active Substance: INFLIXIMAB
     Indication: CROHN^S DISEASE
     Route: 042
     Dates: start: 20130101, end: 20130807
  2. REMICADE [Suspect]
     Active Substance: INFLIXIMAB
     Indication: CROHN^S DISEASE
     Route: 042
     Dates: start: 20151005
  3. REMICADE [Suspect]
     Active Substance: INFLIXIMAB
     Indication: CROHN^S DISEASE
     Route: 042
     Dates: start: 20151201, end: 20151201
  4. IRON INFUSION [Concomitant]
     Active Substance: IRON
     Route: 065

REACTIONS (6)
  - Vaginal haemorrhage [Not Recovered/Not Resolved]
  - Nausea [Unknown]
  - Abdominal pain lower [Recovering/Resolving]
  - Viral infection [Unknown]
  - Female genital tract fistula [Unknown]
  - Sinus congestion [Unknown]

NARRATIVE: CASE EVENT DATE: 201509
